FAERS Safety Report 11890008 (Version 1)
Quarter: 2016Q1

REPORT INFORMATION
  Report Type: Spontaneous
  Country: BR (occurrence: BR)
  Receive Date: 20160105
  Receipt Date: 20160105
  Transmission Date: 20160526
  Serious: Yes (Other)
  Sender: FDA-Public Use
  Company Number: BR-PFIZER INC-2015474963

PATIENT
  Age: 71 Year
  Sex: Female
  Weight: 57 kg

DRUGS (4)
  1. COMPLEXO B /00003501/ [Concomitant]
     Indication: GENERAL PHYSICAL CONDITION
     Dosage: 1 TABLET, UNK
     Dates: start: 201509
  2. LIPITOR [Suspect]
     Active Substance: ATORVASTATIN CALCIUM
     Dosage: 1 TABLET OF 20 MG, DAILY
     Dates: start: 201504
  3. OMEPRAZOLE. [Concomitant]
     Active Substance: OMEPRAZOLE
     Indication: ABDOMINAL DISCOMFORT
     Dosage: 1 TABLET, UNK
     Dates: start: 201511
  4. NORIPURUM [Concomitant]
     Active Substance: IRON POLYMALTOSE
     Indication: ANAEMIA
     Dosage: 40 DROPS
     Dates: start: 201511

REACTIONS (1)
  - Renal cancer [Unknown]
